FAERS Safety Report 8030394-X (Version None)
Quarter: 2012Q1

REPORT INFORMATION
  Report Type: 
  Country: None (occurrence: None)
  Receive Date: 20120109
  Receipt Date: 20120109
  Transmission Date: 20120608
  Serious: Yes (Other)
  Sender: FDA-Public Use
  Company Number: None

PATIENT
  Age: 26 Year
  Sex: Female
  Weight: 108.86 kg

DRUGS (1)
  1. WALGREEN'S BRAND MUCINEX DM [Suspect]
     Indication: PRODUCTIVE COUGH
     Dosage: 1 PILL
     Route: 048
     Dates: start: 20120106, end: 20120106

REACTIONS (14)
  - INSOMNIA [None]
  - HYPOAESTHESIA [None]
  - PERIPHERAL COLDNESS [None]
  - FLUSHING [None]
  - DIZZINESS [None]
  - PARANOIA [None]
  - HEART RATE INCREASED [None]
  - BLOOD PRESSURE INCREASED [None]
  - NAUSEA [None]
  - PRESYNCOPE [None]
  - PYREXIA [None]
  - MUSCULOSKELETAL PAIN [None]
  - TREMOR [None]
  - NECK PAIN [None]
